FAERS Safety Report 6760314-7 (Version None)
Quarter: 2010Q2

REPORT INFORMATION
  Report Type: 
  Country: None (occurrence: None)
  Receive Date: 20100604
  Receipt Date: 20100520
  Transmission Date: 20101027
  Serious: Yes (Hospitalization)
  Sender: FDA-Public Use
  Company Number: IT-2010-0356

PATIENT
  Age: 69 Year
  Sex: Female

DRUGS (6)
  1. NAVELBINE [Suspect]
     Indication: BREAST CANCER
     Dosage: 38.29 MG IV
     Route: 042
     Dates: start: 20091124, end: 20091215
  2. FLUOROURACIL [Suspect]
     Indication: BREAST CANCER
     Dosage: 3064 MG
     Dates: start: 20091124, end: 20091215
  3. DELTACORTENE [Concomitant]
  4. ARTHROTEC [Concomitant]
  5. OXYCONTIN [Concomitant]
  6. LYRICA [Concomitant]

REACTIONS (6)
  - BLOOD CULTURE POSITIVE [None]
  - CHROMATURIA [None]
  - DIVERTICULITIS [None]
  - ENTEROVESICAL FISTULA [None]
  - PYREXIA [None]
  - STAPHYLOCOCCAL INFECTION [None]
